FAERS Safety Report 19430052 (Version 1)
Quarter: 2021Q2

REPORT INFORMATION
  Report Type: Spontaneous
  Country: US (occurrence: US)
  Receive Date: 20210617
  Receipt Date: 20210617
  Transmission Date: 20210717
  Serious: No
  Sender: FDA-Public Use
  Company Number: US-JNJFOC-20210615329

PATIENT
  Age: 34 Year
  Sex: Female

DRUGS (6)
  1. MAGNESIUM CITRATE. [Concomitant]
     Active Substance: MAGNESIUM CITRATE
     Indication: PRODUCT USED FOR UNKNOWN INDICATION
     Route: 065
  2. BIOTIN [Concomitant]
     Active Substance: BIOTIN
     Indication: PRODUCT USED FOR UNKNOWN INDICATION
     Route: 065
  3. WOMENS ROGAINE UNSCENTED [Suspect]
     Active Substance: MINOXIDIL
     Indication: ALOPECIA
     Dosage: 1 CAP FULL ONCE A DAY
     Route: 061
     Dates: start: 20210602
  4. ZYRTEC [Concomitant]
     Active Substance: CETIRIZINE HYDROCHLORIDE
     Indication: PRODUCT USED FOR UNKNOWN INDICATION
     Route: 065
  5. TRI?LO?MARZIA [Concomitant]
     Active Substance: ETHINYL ESTRADIOL\NORGESTIMATE
     Indication: PRODUCT USED FOR UNKNOWN INDICATION
     Route: 065
  6. SPIRONOLACTONE. [Concomitant]
     Active Substance: SPIRONOLACTONE
     Indication: PRODUCT USED FOR UNKNOWN INDICATION
     Route: 065

REACTIONS (7)
  - Application site pain [Recovering/Resolving]
  - Overdose [Unknown]
  - Incorrect product administration duration [Unknown]
  - Application site warmth [Recovering/Resolving]
  - Application site erythema [Recovering/Resolving]
  - Application site rash [Recovering/Resolving]
  - Application site pruritus [Recovering/Resolving]

NARRATIVE: CASE EVENT DATE: 20210602
